FAERS Safety Report 15982562 (Version 1)
Quarter: 2019Q1

REPORT INFORMATION
  Report Type: Spontaneous
  Country: US (occurrence: US)
  Receive Date: 20190219
  Receipt Date: 20190219
  Transmission Date: 20190418
  Serious: No
  Sender: FDA-Public Use
  Company Number: US-ENDO PHARMACEUTICALS INC-2018-039838

PATIENT
  Sex: Male
  Weight: 81.63 kg

DRUGS (1)
  1. XIAFLEX [Suspect]
     Active Substance: COLLAGENASE CLOSTRIDIUM HISTOLYTICUM
     Indication: DUPUYTREN^S CONTRACTURE
     Dosage: UNK MG, UNKNOWN
     Route: 026
     Dates: start: 20180530

REACTIONS (7)
  - Wrong technique in product usage process [Unknown]
  - Peripheral swelling [Not Recovered/Not Resolved]
  - Musculoskeletal stiffness [Unknown]
  - Drug ineffective [Unknown]
  - Injection site hypoaesthesia [Unknown]
  - Pain [Recovering/Resolving]
  - Injection site nodule [Unknown]

NARRATIVE: CASE EVENT DATE: 2018
